FAERS Safety Report 7937501-5 (Version None)
Quarter: 2011Q4

REPORT INFORMATION
  Report Type: 
  Country: None (occurrence: None)
  Receive Date: 20111123
  Receipt Date: 20111114
  Transmission Date: 20120403
  Serious: Yes (Disabling)
  Sender: FDA-Public Use
  Company Number: CA-ASTRAZENECA-2011SE68840

PATIENT
  Age: 80 Year
  Sex: Female

DRUGS (8)
  1. TRAVOPROST AND TIMOLOL [Concomitant]
  2. SANDOZ FELODIPINE [Concomitant]
  3. ATACAND [Suspect]
     Route: 048
  4. DETROL [Concomitant]
  5. RATIO-FLUTICASONE [Concomitant]
  6. XENICAL [Concomitant]
  7. RAN-PANTOPRAZOLE [Concomitant]
  8. CO MELOXICAM [Concomitant]

REACTIONS (1)
  - TINNITUS [None]
